FAERS Safety Report 7947211-6 (Version None)
Quarter: 2011Q4

REPORT INFORMATION
  Report Type: 
  Country: None (occurrence: None)
  Receive Date: 20111129
  Receipt Date: 20111115
  Transmission Date: 20120403
  Serious: Yes (Hospitalization, Other)
  Sender: FDA-Public Use
  Company Number: US-ASTRAZENECA-2011SE69694

PATIENT
  Age: 74 Year
  Sex: Female

DRUGS (2)
  1. PULMICORT [Suspect]
     Route: 055
  2. NEXIUM [Concomitant]

REACTIONS (3)
  - MENINGITIS VIRAL [None]
  - PNEUMONIA [None]
  - HERPES ZOSTER [None]
